FAERS Safety Report 23989813 (Version 3)
Quarter: 2024Q3

REPORT INFORMATION
  Report Type: Spontaneous
  Country: IT (occurrence: IT)
  Receive Date: 20240619
  Receipt Date: 20240703
  Transmission Date: 20241016
  Serious: Yes (Hospitalization)
  Sender: MYLAN
  Company Number: None

PATIENT
  Age: 79 Year
  Sex: Male

DRUGS (7)
  1. ATORVASTATIN [Interacting]
     Active Substance: ATORVASTATIN
     Indication: Acute coronary syndrome
     Dosage: 40 MILLIGRAM, QD (40 MG/DAY)
     Route: 048
     Dates: start: 202211, end: 20221203
  2. COLCHICINE [Interacting]
     Active Substance: COLCHICINE
     Indication: Acute coronary syndrome
     Dosage: 1.5 MILLIGRAM (1/2 TABLET OF 1MG IN THE MORNING + 1 WHOLE TABLET IN THE EVENING OF 1MG)
     Route: 048
     Dates: start: 20221104, end: 20221203
  3. TICAGRELOR [Concomitant]
     Active Substance: TICAGRELOR
     Indication: Ischaemic heart disease prophylaxis
     Dosage: 90 MILLIGRAM, BID
     Route: 048
  4. ASPIRIN [Concomitant]
     Active Substance: ASPIRIN
     Indication: Ischaemic heart disease prophylaxis
     Dosage: 100 MILLIGRAM, QD (100 MG/DAY)
     Route: 048
  5. RAMIPRIL [Concomitant]
     Active Substance: RAMIPRIL
     Indication: Hypertension
     Dosage: 2.5 MILLIGRAM, QD (2.5 MG/DAY)
     Route: 048
  6. CHOLECALCIFEROL [Concomitant]
     Active Substance: CHOLECALCIFEROL
     Indication: Osteoporosis prophylaxis
     Dosage: 50000 INTERNATIONAL UNIT, QW (50,000/WEEK)
     Route: 048
  7. NITROGLYCERIN [Concomitant]
     Active Substance: NITROGLYCERIN
     Indication: Ischaemic heart disease prophylaxis
     Dosage: 10 MILLIGRAM, QD (10 MG/DAY TO BE APPLIED BETWEEN 8.00 PM AND 8.00 AM)
     Route: 062

REACTIONS (8)
  - Muscle necrosis [Recovered/Resolved]
  - Fall [Recovered/Resolved]
  - Concussion [Recovered/Resolved]
  - Gait disturbance [Recovered/Resolved]
  - Asthenia [Recovered/Resolved]
  - Myalgia [Recovered/Resolved]
  - Off label use [Recovered/Resolved]
  - Drug interaction [Unknown]

NARRATIVE: CASE EVENT DATE: 20221101
